FAERS Safety Report 10560829 (Version 2)
Quarter: 2014Q4

REPORT INFORMATION
  Report Type: Spontaneous
  Country: FR (occurrence: FR)
  Receive Date: 20141103
  Receipt Date: 20141106
  Transmission Date: 20150529
  Serious: Yes (Other)
  Sender: FDA-Public Use
  Company Number: FR-TEVA-518057ISR

PATIENT
  Sex: Female

DRUGS (1)
  1. LEELOO GE 0.1 MG/0.02 MG [Suspect]
     Active Substance: ETHINYL ESTRADIOL\LEVONORGESTREL
     Indication: ORAL CONTRACEPTION
     Dosage: 1 DOSAGE FORMS DAILY; STARTED AT END OF 2011- BEGINNING OF 2012
     Dates: start: 2011

REACTIONS (1)
  - Hyperaldosteronism [Not Recovered/Not Resolved]

NARRATIVE: CASE EVENT DATE: 2014
